FAERS Safety Report 7821649-X (Version None)
Quarter: 2011Q4

REPORT INFORMATION
  Report Type: 
  Country: None (occurrence: None)
  Receive Date: 20111018
  Receipt Date: 20100903
  Transmission Date: 20120403
  Serious: No
  Sender: FDA-Public Use
  Company Number: US-ASTRAZENECA-2010SE21475

PATIENT
  Age: 59 Year
  Sex: Female

DRUGS (5)
  1. SYMBICORT [Suspect]
     Indication: ASTHMA
     Dosage: 160/4.5 MCG, 1 PUFF BID
     Route: 055
     Dates: start: 20100101
  2. XANAX [Concomitant]
     Dosage: 0.25 TO 0.5 MG DAILY
  3. PROAIR HFA [Concomitant]
     Dosage: 2 PUFFS EVERY SIX HOURS AS NEEDED
  4. KENALOG [Concomitant]
  5. SYMBICORT [Suspect]
     Route: 055

REACTIONS (3)
  - CATARACT [None]
  - NASOPHARYNGITIS [None]
  - VITREOUS FLOATERS [None]
